FAERS Safety Report 16477536 (Version 1)
Quarter: 2019Q2

REPORT INFORMATION
  Report Type: Spontaneous
  Country: IT (occurrence: IT)
  Receive Date: 20190626
  Receipt Date: 20190626
  Transmission Date: 20190711
  Serious: Yes (Life-Threatening, Other)
  Sender: FDA-Public Use
  Company Number: IT-BRISTOL-MYERS SQUIBB COMPANY-BMS-2019-061867

PATIENT
  Age: 49 Year
  Sex: Female
  Weight: 77 kg

DRUGS (1)
  1. NIVOLUMAB [Suspect]
     Active Substance: NIVOLUMAB
     Indication: LUNG NEOPLASM
     Dosage: 230 MILLIGRAM (EVERY CYCLE)
     Route: 041
     Dates: start: 20190521, end: 20190521

REACTIONS (1)
  - Atrioventricular block [Recovering/Resolving]

NARRATIVE: CASE EVENT DATE: 20190616
